FAERS Safety Report 11809753 (Version 1)
Quarter: 2015Q4

REPORT INFORMATION
  Report Type: Spontaneous
  Country: US (occurrence: US)
  Receive Date: 20151208
  Receipt Date: 20151208
  Transmission Date: 20160305
  Serious: No
  Sender: FDA-Public Use
  Company Number: US-SUN PHARMACEUTICAL INDUSTRIES LTD-2015US-107096

PATIENT
  Sex: Female

DRUGS (2)
  1. IBANDRONIC [Suspect]
     Active Substance: IBANDRONIC ACID
     Indication: MOVEMENT DISORDER
     Dosage: UNK
     Route: 042
     Dates: start: 20151030
  2. IBANDRONIC [Suspect]
     Active Substance: IBANDRONIC ACID
     Indication: OSTEOPOROSIS

REACTIONS (7)
  - Pollakiuria [Unknown]
  - Swelling face [Unknown]
  - Malaise [Unknown]
  - Swollen tongue [Unknown]
  - Dizziness [Unknown]
  - Asthenia [Unknown]
  - Hyperhidrosis [Unknown]

NARRATIVE: CASE EVENT DATE: 20151101
